FAERS Safety Report 14869710 (Version 1)
Quarter: 2018Q2

REPORT INFORMATION
  Report Type: Spontaneous
  Country: FR (occurrence: FR)
  Receive Date: 20180509
  Receipt Date: 20180509
  Transmission Date: 20180711
  Serious: Yes (Hospitalization)
  Sender: FDA-Public Use
  Company Number: FR-JNJFOC-20180503845

PATIENT
  Age: 46 Year
  Sex: Female
  Weight: 92 kg

DRUGS (10)
  1. THERALENE [Concomitant]
     Active Substance: TRIMEPRAZINE
     Route: 048
  2. NORSET [Suspect]
     Active Substance: MIRTAZAPINE
     Indication: SUICIDE ATTEMPT
     Route: 048
     Dates: start: 20180212, end: 20180212
  3. SERESTA [Suspect]
     Active Substance: OXAZEPAM
     Indication: SUICIDE ATTEMPT
     Route: 048
     Dates: start: 20180212, end: 20180212
  4. CHLORPROMAZINE. [Suspect]
     Active Substance: CHLORPROMAZINE
     Indication: SUICIDE ATTEMPT
     Route: 048
     Dates: start: 20180212, end: 20180212
  5. PROPRANOLOL [Suspect]
     Active Substance: PROPRANOLOL HYDROCHLORIDE
     Indication: SUICIDE ATTEMPT
     Route: 048
     Dates: start: 20180212, end: 20180212
  6. SULFARLEM S [Concomitant]
     Active Substance: ANETHOLTRITHION
     Route: 048
  7. TOPIRAMATE. [Suspect]
     Active Substance: TOPIRAMATE
     Indication: SUICIDE ATTEMPT
     Route: 048
     Dates: start: 20180212, end: 20180212
  8. IMOVANE [Suspect]
     Active Substance: ZOPICLONE
     Indication: SUICIDE ATTEMPT
     Route: 048
     Dates: start: 20180212, end: 20180212
  9. XEROQUEL [Suspect]
     Active Substance: QUETIAPINE FUMARATE
     Indication: SUICIDE ATTEMPT
     Route: 048
     Dates: start: 20180212, end: 20180212
  10. EFFEXOR [Suspect]
     Active Substance: VENLAFAXINE HYDROCHLORIDE
     Indication: SUICIDE ATTEMPT
     Route: 048
     Dates: start: 20180212, end: 20180212

REACTIONS (1)
  - Altered state of consciousness [Recovered/Resolved]

NARRATIVE: CASE EVENT DATE: 20180212
